FAERS Safety Report 4297679-4 (Version None)
Quarter: 2004Q1

REPORT INFORMATION
  Report Type: 
  Country: None (occurrence: None)
  Receive Date: 20040213
  Receipt Date: 20040202
  Transmission Date: 20041129
  Serious: Yes (Hospitalization)
  Sender: FDA-Public Use
  Company Number: 04P-114-0249345-00

PATIENT
  Age: 57 Year
  Sex: Male

DRUGS (7)
  1. MERIDIA [Suspect]
     Indication: OBESITY
     Dosage: 15 MG, 2 IN 1 D, PER ORAL
     Route: 048
     Dates: start: 20030623, end: 20030815
  2. INSULINE MIXTARD 30/70 [Concomitant]
  3. GLUCOPHAGE [Concomitant]
  4. BUMETANIDE [Concomitant]
  5. QUINAPRIL HCL [Concomitant]
  6. SPIRONOLACTONE [Concomitant]
  7. PARACETAMOLUM [Concomitant]

REACTIONS (1)
  - RENAL IMPAIRMENT [None]
